FAERS Safety Report 9435352 (Version 1)
Quarter: 2013Q3

REPORT INFORMATION
  Report Type: Spontaneous
  Country: DE (occurrence: DE)
  Receive Date: 20130801
  Receipt Date: 20130801
  Transmission Date: 20140515
  Serious: Yes (Other)
  Sender: FDA-Public Use
  Company Number: DE-BRISTOL-MYERS SQUIBB COMPANY-19134733

PATIENT
  Age: 18 Year
  Sex: Male

DRUGS (1)
  1. ABILIFY [Suspect]
     Indication: TOURETTE^S DISORDER
     Dosage: PATIENT RECEIVES ABILIFY FOR A MINIMUM OF 5 YEARS (WITH ONE INTERRUPTION

REACTIONS (5)
  - Thrombosis [Unknown]
  - Loss of consciousness [Unknown]
  - Blood creatine phosphokinase increased [Unknown]
  - Tachycardia [Unknown]
  - Bradycardia [Unknown]
